FAERS Safety Report 6544556-1 (Version None)
Quarter: 2010Q1

REPORT INFORMATION
  Report Type: 
  Country: None (occurrence: None)
  Receive Date: 20100120
  Receipt Date: 20100120
  Transmission Date: 20100710
  Serious: Yes (Disabling)
  Sender: FDA-Public Use
  Company Number: None

PATIENT
  Sex: Female
  Weight: 52.1637 kg

DRUGS (1)
  1. LEVORA 0.15/30-21 [Suspect]
     Indication: CONTRACEPTION
     Dosage: ONCE A DAY PO
     Route: 048
     Dates: start: 20040101, end: 20091003

REACTIONS (5)
  - ANAL FISSURE [None]
  - CHEST PAIN [None]
  - GASTROINTESTINAL HYPOMOTILITY [None]
  - HAEMORRHAGE [None]
  - IRRITABLE BOWEL SYNDROME [None]
